FAERS Safety Report 10039090 (Version 2)
Quarter: 2014Q1

REPORT INFORMATION
  Report Type: Spontaneous
  Country: US (occurrence: US)
  Receive Date: 20140326
  Receipt Date: 20140326
  Transmission Date: 20141002
  Serious: Yes (Hospitalization)
  Sender: FDA-Public Use
  Company Number: US-ABBVIE-14P-163-1213481-00

PATIENT
  Age: 43 Year
  Sex: Male
  Weight: 89.44 kg

DRUGS (3)
  1. ANDROGEL [Suspect]
     Indication: BLOOD TESTOSTERONE DECREASED
     Dosage: 1 PACK
     Route: 061
     Dates: start: 2013
  2. AZATHIOPRINE [Concomitant]
     Indication: CROHN^S DISEASE
  3. BUDESONIDE [Concomitant]
     Indication: CROHN^S DISEASE

REACTIONS (8)
  - Haemorrhage [Recovered/Resolved]
  - Loss of consciousness [Unknown]
  - Melaena [Recovered/Resolved]
  - Feeling hot [Recovered/Resolved]
  - Sensation of blood flow [Recovered/Resolved]
  - Dyspnoea [Recovered/Resolved]
  - Asthenia [Not Recovered/Not Resolved]
  - Lethargy [Not Recovered/Not Resolved]
